FAERS Safety Report 8919525 (Version 2)
Quarter: 2012Q4

REPORT INFORMATION
  Report Type: 
  Country: US (occurrence: US)
  Receive Date: 20121121
  Receipt Date: 20121227
  Transmission Date: 20130627
  Serious: Yes (Hospitalization)
  Sender: FDA-Public Use
  Company Number: US-BAYER-2012-120605

PATIENT
  Age: 28 Year
  Sex: Female

DRUGS (11)
  1. YASMIN [Suspect]
     Dosage: UNK
     Dates: start: 200509
  2. OCELLA [Suspect]
     Dosage: UNK
     Dates: start: 200812, end: 200903
  3. ADVIL [Concomitant]
     Indication: HEADACHE
     Dosage: UNK
     Dates: start: 200903
  4. IMITREX [Concomitant]
     Indication: HEADACHE
     Dosage: UNK
     Dates: start: 200903
  5. PHENERGAN WITH CODEINE [Concomitant]
     Dosage: UNK
     Dates: start: 200903
  6. TREXIMET [Concomitant]
  7. COMPAZINE [Concomitant]
  8. KETOROLAC [Concomitant]
  9. DILANTIN [Concomitant]
     Route: 042
  10. KEPPRA [Concomitant]
  11. ATIVAN [Concomitant]

REACTIONS (8)
  - Intracranial venous sinus thrombosis [None]
  - Convulsion [None]
  - Injury [None]
  - Pain [None]
  - Emotional distress [None]
  - General physical health deterioration [None]
  - Anxiety [None]
  - Pain [None]
